FAERS Safety Report 24958319 (Version 5)
Quarter: 2025Q2

REPORT INFORMATION
  Report Type: Report from Study
  Country: CA (occurrence: CA)
  Receive Date: 20250212
  Receipt Date: 20250617
  Transmission Date: 20250716
  Serious: Yes (Hospitalization)
  Sender: CSL BEHRING
  Company Number: CA-BEH-2024178084

PATIENT
  Age: 61 Year
  Sex: Female
  Weight: 84 kg

DRUGS (16)
  1. HIZENTRA [Suspect]
     Active Substance: HUMAN IMMUNOGLOBULIN G
     Indication: Primary immunodeficiency syndrome
     Dosage: 8 G, QW
     Route: 058
     Dates: start: 20240803
  2. HIZENTRA [Suspect]
     Active Substance: HUMAN IMMUNOGLOBULIN G
     Dosage: 8 G, QW
     Route: 042
     Dates: start: 20240803
  3. HIZENTRA [Suspect]
     Active Substance: HUMAN IMMUNOGLOBULIN G
     Dosage: UNK, QW
     Route: 065
  4. HIZENTRA [Suspect]
     Active Substance: HUMAN IMMUNOGLOBULIN G
     Dosage: 8 G, QW
     Route: 065
     Dates: start: 20230803
  5. HIZENTRA [Suspect]
     Active Substance: HUMAN IMMUNOGLOBULIN G
     Dosage: 8 G, QW
     Route: 058
     Dates: start: 20230803
  6. HIZENTRA [Suspect]
     Active Substance: HUMAN IMMUNOGLOBULIN G
     Dosage: 8 G, QW
     Route: 058
     Dates: start: 20230803
  7. HIZENTRA [Suspect]
     Active Substance: HUMAN IMMUNOGLOBULIN G
     Dosage: 7 G, QW
     Route: 058
     Dates: start: 20230803
  8. LORATADINE [Concomitant]
     Active Substance: LORATADINE
  9. RABEPRAZOLE [Concomitant]
     Active Substance: RABEPRAZOLE
  10. ATORVASTATIN [Concomitant]
     Active Substance: ATORVASTATIN
  11. AMITRIPTYLINE [Concomitant]
     Active Substance: AMITRIPTYLINE
  12. RAMIPRIL [Concomitant]
     Active Substance: RAMIPRIL
  13. MYCOPHENOLATE MOFETIL [Concomitant]
     Active Substance: MYCOPHENOLATE MOFETIL
  14. MYCOPHENOLIC ACID [Concomitant]
     Active Substance: MYCOPHENOLIC ACID
  15. VITAMINS [Concomitant]
     Active Substance: VITAMINS
  16. ATORVASTATIN CALCIUM [Concomitant]
     Active Substance: ATORVASTATIN CALCIUM
     Route: 065

REACTIONS (43)
  - Loss of consciousness [Unknown]
  - Blood electrolytes decreased [Unknown]
  - Blood iron decreased [Unknown]
  - Asthenia [Unknown]
  - Injection site swelling [Unknown]
  - Abdominal pain upper [Unknown]
  - Headache [Unknown]
  - Pyrexia [Unknown]
  - Pyrexia [Unknown]
  - Headache [Unknown]
  - Headache [Unknown]
  - Rash [Recovered/Resolved]
  - Rash [Unknown]
  - Headache [Unknown]
  - Injection site rash [Unknown]
  - Injection site swelling [Unknown]
  - Injection site induration [Unknown]
  - Pyrexia [Unknown]
  - Pain [Unknown]
  - Injection site rash [Unknown]
  - Injection site erythema [Unknown]
  - Rash [Unknown]
  - Injection site erythema [Unknown]
  - Injection site rash [Unknown]
  - Injection site rash [Unknown]
  - Injection site erythema [Unknown]
  - Urticaria [Recovered/Resolved]
  - Rash erythematous [Unknown]
  - Injection site swelling [Unknown]
  - Tremor [Unknown]
  - Injection site haemorrhage [Unknown]
  - Injection site pain [Unknown]
  - Rash [Unknown]
  - Rash [Unknown]
  - Pain [Unknown]
  - Pyrexia [Unknown]
  - Infusion site swelling [Unknown]
  - Rash erythematous [Unknown]
  - Infusion site pain [Unknown]
  - Skin weeping [Unknown]
  - Urticaria [Unknown]
  - Nonspecific reaction [Unknown]
  - Off label use [Unknown]

NARRATIVE: CASE EVENT DATE: 20240812
